FAERS Safety Report 5804532-0 (Version None)
Quarter: 2008Q3

REPORT INFORMATION
  Report Type: 
  Country: None (occurrence: None)
  Receive Date: 20080707
  Receipt Date: 20080620
  Transmission Date: 20090109
  Serious: Yes (Other)
  Sender: FDA-Public Use
  Company Number: DSA_32058_2008

PATIENT

DRUGS (1)
  1. RENIVACE (RENIVACE - ENALAPRIL MALEATE) (NOT SPECIFIED) [Suspect]
     Dosage: (DF ORAL)
     Route: 048

REACTIONS (3)
  - BLOOD PRESSURE DECREASED [None]
  - INTENTIONAL OVERDOSE [None]
  - SUICIDE ATTEMPT [None]
